FAERS Safety Report 21970197 (Version 2)
Quarter: 2023Q1

REPORT INFORMATION
  Report Type: Report from Study
  Country: US (occurrence: US)
  Receive Date: 20230209
  Receipt Date: 20230212
  Transmission Date: 20230418
  Serious: Yes (Other)
  Sender: FDA-Public Use
  Company Number: US-ABBVIE-4301059

PATIENT
  Sex: Female

DRUGS (2)
  1. VENCLEXTA [Suspect]
     Active Substance: VENETOCLAX
     Indication: Iron deficiency anaemia
     Route: 048
  2. VENCLEXTA [Suspect]
     Active Substance: VENETOCLAX
     Indication: Iron deficiency anaemia
     Dosage: TOOK 2 TABLETS BY MOUTH ONCE DAILY AT FOOD 3 WEEK ON AND 1 WEEK OFF
     Route: 048

REACTIONS (1)
  - Abdominal neoplasm [Unknown]
